FAERS Safety Report 10970282 (Version 1)
Quarter: 2015Q1

REPORT INFORMATION
  Report Type: Spontaneous
  Country: US (occurrence: None)
  Receive Date: 20150330
  Receipt Date: 20150330
  Transmission Date: 20150721
  Serious: Yes (Other)
  Sender: FDA-Public Use
  Company Number: None

PATIENT
  Age: 50 Year
  Sex: Male

DRUGS (10)
  1. HYDROCHLOROTHAIZDE [Concomitant]
  2. GUANFACINE. [Concomitant]
     Active Substance: GUANFACINE
  3. SYNTHROID [Concomitant]
     Active Substance: LEVOTHYROXINE SODIUM
  4. AMLODIPINE [Concomitant]
     Active Substance: AMLODIPINE BESYLATE
  5. VITAMIN D3 [Concomitant]
     Active Substance: CHOLECALCIFEROL
  6. CELEBREX [Suspect]
     Active Substance: CELECOXIB
     Indication: ARTHRITIS
     Dosage: 2, TWICE DAILY, TAKEN BY MOUTH
     Route: 048
  7. ATENOLOL. [Concomitant]
     Active Substance: ATENOLOL
  8. GEMFIREOZIL [Concomitant]
  9. ASPRIN [Concomitant]
     Active Substance: ASPIRIN
  10. LOSARTAN [Concomitant]
     Active Substance: LOSARTAN

REACTIONS (6)
  - Inadequate analgesia [None]
  - Product substitution issue [None]
  - Headache [None]
  - Feeling abnormal [None]
  - Abdominal discomfort [None]
  - Pain [None]

NARRATIVE: CASE EVENT DATE: 20150329
